FAERS Safety Report 5721128-X (Version None)
Quarter: 2008Q2

REPORT INFORMATION
  Report Type: 
  Country: None (occurrence: None)
  Receive Date: 20080429
  Receipt Date: 20080424
  Transmission Date: 20081010
  Serious: Yes (Other)
  Sender: FDA-Public Use
  Company Number: A0724573A

PATIENT
  Age: 77 Year
  Sex: Female

DRUGS (9)
  1. FLOVENT [Suspect]
     Indication: PNEUMONIA
     Dosage: 220MCG TWICE PER DAY
     Route: 055
     Dates: end: 20080418
  2. ZOLOFT [Concomitant]
  3. XANAX [Concomitant]
  4. COUMADIN [Concomitant]
  5. ZOCOR [Concomitant]
  6. LISINOPRIL [Concomitant]
  7. FUROSEMIDE INTENSOL [Concomitant]
  8. PROTINEX [Concomitant]
  9. NEBULIZER [Concomitant]

REACTIONS (6)
  - APHASIA [None]
  - CHOKING [None]
  - DYSPHONIA [None]
  - PHARMACEUTICAL PRODUCT COMPLAINT [None]
  - PHARYNGOLARYNGEAL PAIN [None]
  - RETCHING [None]
